FAERS Safety Report 22258503 (Version 5)
Quarter: 2024Q2

REPORT INFORMATION
  Report Type: Spontaneous
  Country: US (occurrence: US)
  Receive Date: 20230427
  Receipt Date: 20240403
  Transmission Date: 20240716
  Serious: No
  Sender: FDA-Public Use
  Company Number: US-DSJP-DSU-2023-116168AA

PATIENT
  Age: 42 Year
  Sex: Female

DRUGS (2)
  1. TURALIO [Suspect]
     Active Substance: PEXIDARTINIB HYDROCHLORIDE
     Indication: Synovitis
     Dosage: 250 MG, BID
     Route: 048
     Dates: start: 20230410
  2. TURALIO [Suspect]
     Active Substance: PEXIDARTINIB HYDROCHLORIDE
     Indication: Giant cell tumour of tendon sheath

REACTIONS (13)
  - Sunburn [Not Recovered/Not Resolved]
  - Brain fog [Unknown]
  - Dry skin [Not Recovered/Not Resolved]
  - Swelling [Recovered/Resolved]
  - Weight increased [Recovered/Resolved]
  - Eye disorder [Recovered/Resolved]
  - Memory impairment [Recovered/Resolved]
  - Paraesthesia [Not Recovered/Not Resolved]
  - Fatigue [Unknown]
  - Diplopia [Recovered/Resolved]
  - Visual acuity reduced [Recovered/Resolved]
  - Product dose omission issue [Recovered/Resolved]
  - Product dose omission issue [Recovered/Resolved]

NARRATIVE: CASE EVENT DATE: 20240321
